FAERS Safety Report 19698462 (Version 1)
Quarter: 2021Q3

REPORT INFORMATION
  Report Type: Spontaneous
  Country: IE (occurrence: IE)
  Receive Date: 20210813
  Receipt Date: 20210813
  Transmission Date: 20211014
  Serious: Yes (Disabling, Other)
  Sender: FDA-Public Use
  Company Number: IE-TEVA-2021-IE-1940644

PATIENT
  Age: 39 Year
  Sex: Female

DRUGS (7)
  1. PALEXIA SR 150 MG PROLONGED?RELEASE TABLETS [Concomitant]
     Indication: PAIN
     Dosage: 150MG
     Dates: start: 20170819
  2. XANAX [Concomitant]
     Active Substance: ALPRAZOLAM
     Indication: CENTRAL PAIN SYNDROME
     Dosage: 500MCG
     Dates: start: 20190817
  3. DULOXETINE (G) [Concomitant]
     Indication: PAIN
     Dosage: 90MG
     Dates: start: 20200107
  4. AJOVY [Suspect]
     Active Substance: FREMANEZUMAB-VFRM
     Indication: MIGRAINE
     Dosage: 225MG MONTHLY DOSE
     Route: 065
     Dates: start: 20210624
  5. MAXOLON [Concomitant]
     Active Substance: METOCLOPRAMIDE HYDROCHLORIDE
     Indication: NAUSEA
     Dosage: 10MG
     Dates: start: 20170819
  6. PALEXIA 50MG FILM COATED TABLETS [Concomitant]
     Indication: PAIN
     Dosage: 50MG
     Dates: start: 20170819
  7. DULOXETINE (G) [Concomitant]
     Indication: DEPRESSION

REACTIONS (16)
  - Neck pain [Not Recovered/Not Resolved]
  - Ear pain [Not Recovered/Not Resolved]
  - Asthenopia [Not Recovered/Not Resolved]
  - Bedridden [Not Recovered/Not Resolved]
  - Abdominal pain upper [Not Recovered/Not Resolved]
  - Tinnitus [Not Recovered/Not Resolved]
  - Photophobia [Not Recovered/Not Resolved]
  - Speech disorder [Not Recovered/Not Resolved]
  - Arthralgia [Not Recovered/Not Resolved]
  - Nausea [Not Recovered/Not Resolved]
  - Paraesthesia [Not Recovered/Not Resolved]
  - Hyperacusis [Not Recovered/Not Resolved]
  - Eye irritation [Not Recovered/Not Resolved]
  - Migraine [Not Recovered/Not Resolved]
  - Vomiting [Not Recovered/Not Resolved]
  - Eye pain [Not Recovered/Not Resolved]

NARRATIVE: CASE EVENT DATE: 20210625
